FAERS Safety Report 4277560-7 (Version None)
Quarter: 2004Q1

REPORT INFORMATION
  Report Type: 
  Country: None (occurrence: None)
  Receive Date: 20040121
  Receipt Date: 20040121
  Transmission Date: 20041129
  Serious: Yes (Hospitalization)
  Sender: FDA-Public Use
  Company Number: None

PATIENT
  Age: 73 Year
  Sex: Male
  Weight: 70.8 kg

DRUGS (6)
  1. CARBIDOPA AND LEVODOPA [Suspect]
     Indication: PARKINSON'S DISEASE
     Dosage: 25/ 100SA, ORAL
     Route: 048
  2. QUETIAPINE FUMARATE [Concomitant]
  3. MIDODRINE HCL [Concomitant]
  4. ENTACAPONE [Concomitant]
  5. SENNOSIDES [Concomitant]
  6. ASPIRIN [Concomitant]

REACTIONS (1)
  - SHARED PSYCHOTIC DISORDER [None]
